FAERS Safety Report 5153277-1 (Version None)
Quarter: 2006Q4

REPORT INFORMATION
  Report Type: 
  Country: None (occurrence: None)
  Receive Date: 20061117
  Receipt Date: 20061107
  Transmission Date: 20070319
  Serious: Yes (Other)
  Sender: FDA-Public Use
  Company Number: US-SANOFI-SYNTHELABO-A03200606695

PATIENT
  Sex: Male

DRUGS (7)
  1. RIBAVIRIN [Suspect]
     Indication: HEPATITIS C
     Dosage: UNK
     Route: 048
     Dates: start: 20060609, end: 20060901
  2. PEG-INTRON [Suspect]
     Indication: HEPATITIS C
     Dosage: UNK
     Route: 058
     Dates: start: 20060609, end: 20060901
  3. METFORMIN [Concomitant]
     Dosage: UNK
     Route: 048
  4. GLYBURIDE [Concomitant]
     Dosage: UNK
     Route: 048
  5. ASPIRIN [Concomitant]
     Dosage: UNK
     Route: 048
  6. AMBIEN [Suspect]
     Indication: INSOMNIA
     Dosage: UNK
     Route: 048
     Dates: end: 20060101
  7. PROCRIT [Concomitant]
     Dosage: UNK
     Route: 065

REACTIONS (7)
  - DRUG WITHDRAWAL SYNDROME [None]
  - FATIGUE [None]
  - HANGOVER [None]
  - MEMORY IMPAIRMENT [None]
  - MENTAL IMPAIRMENT [None]
  - REBOUND EFFECT [None]
  - ROAD TRAFFIC ACCIDENT [None]
